FAERS Safety Report 8243420-X (Version None)
Quarter: 2012Q1

REPORT INFORMATION
  Report Type: 
  Country: None (occurrence: None)
  Receive Date: 20120329
  Receipt Date: 20120314
  Transmission Date: 20120608
  Serious: Yes (Hospitalization)
  Sender: FDA-Public Use
  Company Number: US-ROCHE-1053507

PATIENT
  Sex: Female
  Weight: 64 kg

DRUGS (11)
  1. BLINDED BI 201335 (HCV PROTEASE INHIBITOR) [Suspect]
     Indication: HEPATITIS C
     Dosage: DOSAGE FORM: KAW
     Route: 048
     Dates: start: 20111101, end: 20120117
  2. TRAZODONE HCL [Concomitant]
     Indication: DEPRESSION
     Route: 048
  3. COPEGUS [Suspect]
     Route: 048
  4. COPEGUS [Suspect]
     Indication: HEPATITIS C
     Route: 048
     Dates: start: 20111101, end: 20120117
  5. PEGINTERFERON ALFA-2A [Suspect]
     Indication: HEPATITIS C
     Dosage: DOSAGE FORM:SPI
     Route: 058
     Dates: start: 20111101, end: 20120117
  6. AMLODIPINE [Concomitant]
     Indication: HYPERTENSION
     Route: 048
  7. LISINOPRIL AND HYDROCHLOROTHIAZIDE [Concomitant]
     Indication: HYPERTENSION
     Dosage: 20-25 MG
     Route: 048
  8. TRAMADOL HCL [Concomitant]
     Indication: ARTHRALGIA
     Route: 048
  9. PEGINTERFERON ALFA-2A [Suspect]
     Dosage: THERAPY ONGOING
  10. FLUOXETINE [Concomitant]
     Indication: DEPRESSION
     Route: 048
  11. COMPAZINE [Concomitant]

REACTIONS (1)
  - PRESYNCOPE [None]
